FAERS Safety Report 5410747-6 (Version None)
Quarter: 2007Q3

REPORT INFORMATION
  Report Type: 
  Country: None (occurrence: None)
  Receive Date: 20070810
  Receipt Date: 20070214
  Transmission Date: 20080115
  Serious: No
  Sender: FDA-Public Use
  Company Number: A0639580A

PATIENT
  Age: 19 Year
  Sex: Female

DRUGS (1)
  1. PAXIL [Suspect]
     Indication: DRUG USE FOR UNKNOWN INDICATION
     Dosage: 12.5MG AT NIGHT
     Route: 048
     Dates: start: 20070208

REACTIONS (2)
  - INFLUENZA [None]
  - THERAPEUTIC RESPONSE UNEXPECTED [None]
